FAERS Safety Report 20187958 (Version 1)
Quarter: 2021Q4

REPORT INFORMATION
  Report Type: Spontaneous
  Country: US (occurrence: US)
  Receive Date: 20211215
  Receipt Date: 20211215
  Transmission Date: 20220303
  Serious: Yes (Other)
  Sender: FDA-Public Use
  Company Number: US-PURDUE-USA-2021-0289973

PATIENT

DRUGS (1)
  1. OXYCODONE HYDROCHLORIDE [Suspect]
     Active Substance: OXYCODONE HYDROCHLORIDE
     Indication: Product used for unknown indication
     Dosage: UNKNOWN
     Route: 065

REACTIONS (9)
  - Liver injury [Unknown]
  - Bipolar disorder [Unknown]
  - Drug dependence [Unknown]
  - Poor personal hygiene [Unknown]
  - Nutritional condition abnormal [Unknown]
  - Bowel movement irregularity [Unknown]
  - Panic attack [Unknown]
  - Depression [Unknown]
  - Anxiety [Unknown]
